FAERS Safety Report 6776687-5 (Version None)
Quarter: 2010Q2

REPORT INFORMATION
  Report Type: 
  Country: None (occurrence: None)
  Receive Date: 20100617
  Receipt Date: 20100617
  Transmission Date: 20101027
  Serious: Yes (Hospitalization)
  Sender: FDA-Public Use
  Company Number: None

PATIENT
  Sex: Female
  Weight: 55.3 kg

DRUGS (2)
  1. CARBOPLATIN [Suspect]
     Dosage: 266 MG
     Dates: end: 20100507
  2. TAXOL [Suspect]
     Dosage: 514 MG
     Dates: end: 20100507

REACTIONS (8)
  - ANAEMIA [None]
  - CONSTIPATION [None]
  - DEHYDRATION [None]
  - DISEASE PROGRESSION [None]
  - HYDRONEPHROSIS [None]
  - LARGE INTESTINAL OBSTRUCTION [None]
  - RENAL FAILURE ACUTE [None]
  - TUMOUR COMPRESSION [None]
